FAERS Safety Report 9675780 (Version 1)
Quarter: 2013Q4

REPORT INFORMATION
  Report Type: Spontaneous
  Country: US (occurrence: US)
  Receive Date: 20131107
  Receipt Date: 20131107
  Transmission Date: 20140711
  Serious: Yes (Other)
  Sender: FDA-Public Use
  Company Number: US-SHIRE-ALL1-2013-07493

PATIENT
  Age: 6 Year
  Sex: Male

DRUGS (2)
  1. VYVANSE [Suspect]
     Indication: ATTENTION DEFICIT/HYPERACTIVITY DISORDER
     Dosage: 20 MG, UNKNOWN
     Route: 048
     Dates: start: 2010
  2. VYVANSE [Suspect]
     Dosage: 20 MG, UNKNOWN
     Route: 048
     Dates: start: 2013

REACTIONS (4)
  - Suicidal ideation [Recovered/Resolved]
  - Anger [Recovered/Resolved]
  - Underweight [Recovered/Resolved]
  - Decreased appetite [Unknown]
